FAERS Safety Report 9730489 (Version 1)
Quarter: 2013Q4

REPORT INFORMATION
  Report Type: Spontaneous
  Country: BR (occurrence: BR)
  Receive Date: 20131202
  Receipt Date: 20131202
  Transmission Date: 20140711
  Serious: Yes (Death, Other)
  Sender: FDA-Public Use
  Company Number: BR-MERCK-1311BRA013008

PATIENT
  Age: 4 Hour
  Sex: 0
  Weight: .63 kg

DRUGS (1)
  1. MERCILON [Suspect]
     Indication: CONTRACEPTION
     Dosage: UNK
     Route: 064
     Dates: start: 2009, end: 2010

REACTIONS (2)
  - Premature baby [Unknown]
  - Death [Fatal]
